FAERS Safety Report 9559665 (Version 1)
Quarter: 2013Q3

REPORT INFORMATION
  Report Type: Spontaneous
  Country: US (occurrence: None)
  Receive Date: 20130906
  Receipt Date: 20130906
  Transmission Date: 20140515
  Serious: Yes (Hospitalization)
  Sender: FDA-Public Use
  Company Number: 163-POMAL-13072187

PATIENT
  Age: 59 Year
  Sex: Female
  Weight: 49.9 kg

DRUGS (1)
  1. POMALYST [Suspect]
     Indication: PLASMA CELL MYELOMA
     Dosage: 4 MG, 21 IN 28 D, PO  - TEMP INTERRUPTED
     Route: 048
     Dates: start: 201305

REACTIONS (4)
  - Pain [None]
  - Hypersensitivity [None]
  - Pyrexia [None]
  - Nausea [None]
